FAERS Safety Report 5537326-4 (Version None)
Quarter: 2007Q4

REPORT INFORMATION
  Report Type: 
  Country: None (occurrence: None)
  Receive Date: 20071207
  Receipt Date: 20071126
  Transmission Date: 20080405
  Serious: Yes (Other)
  Sender: FDA-Public Use
  Company Number: GB-AMGEN-US252997

PATIENT
  Sex: Female

DRUGS (7)
  1. ENBREL [Suspect]
     Indication: RHEUMATOID ARTHRITIS
     Route: 058
     Dates: start: 20060430
  2. DICLOFENAC [Concomitant]
     Route: 065
  3. CODEINE PHOSPHATE/PARACETAMOL [Concomitant]
     Dosage: UNKNOWN DOSAGE AS REQUIRED
     Route: 065
  4. ACETYLSALICYLIC ACID SRT [Concomitant]
     Route: 065
  5. AMITRIPTLINE HCL [Concomitant]
     Route: 065
  6. METHOTREXATE [Concomitant]
     Route: 048
  7. FOLIC ACID [Concomitant]
     Route: 065

REACTIONS (2)
  - ABDOMINAL DISTENSION [None]
  - WEIGHT INCREASED [None]
